FAERS Safety Report 25234891 (Version 3)
Quarter: 2025Q2

REPORT INFORMATION
  Report Type: Spontaneous
  Country: DE (occurrence: DE)
  Receive Date: 20250424
  Receipt Date: 20250527
  Transmission Date: 20250716
  Serious: No
  Sender: PFIZER
  Company Number: DE-PFIZER INC-202500085444

PATIENT
  Age: 43 Year
  Sex: Female

DRUGS (1)
  1. MEDROXYPROGESTERONE [Suspect]
     Active Substance: MEDROXYPROGESTERONE
     Indication: Contraception
     Route: 058

REACTIONS (1)
  - Device use issue [Unknown]

NARRATIVE: CASE EVENT DATE: 20250416
